FAERS Safety Report 6203405-1 (Version None)
Quarter: 2009Q2

REPORT INFORMATION
  Report Type: 
  Country: None (occurrence: None)
  Receive Date: 20090527
  Receipt Date: 20090517
  Transmission Date: 20091009
  Serious: Yes (Other)
  Sender: FDA-Public Use
  Company Number: ES-AMGEN-QUU344413

PATIENT
  Sex: Male
  Weight: 81 kg

DRUGS (12)
  1. ARANESP [Suspect]
     Indication: DIALYSIS
     Route: 042
     Dates: start: 20060520
  2. RENAGEL [Concomitant]
     Route: 048
     Dates: start: 20060915
  3. BECOZYME [Concomitant]
     Route: 048
     Dates: start: 20060125
  4. ACFOL [Concomitant]
     Route: 048
     Dates: start: 20060125
  5. SODIUM BICARBONATE IN PLASTIC CONTAINER [Concomitant]
     Route: 048
  6. OMEPRAZOLE [Concomitant]
     Route: 048
     Dates: start: 20071215
  7. PROSCAR [Concomitant]
     Route: 048
     Dates: start: 20051214
  8. HEMOVAS [Concomitant]
     Route: 048
     Dates: start: 20090402
  9. NICARDIPINE HYDROCHLORIDE [Concomitant]
     Route: 048
     Dates: start: 20081028
  10. CARNICOR [Concomitant]
     Route: 042
     Dates: start: 20080509
  11. ATARAX [Concomitant]
     Route: 048
     Dates: start: 20051214
  12. ROCALTROL [Concomitant]
     Route: 048
     Dates: start: 20081119

REACTIONS (3)
  - ANAEMIA [None]
  - DRUG INEFFECTIVE [None]
  - MALAISE [None]
